FAERS Safety Report 10088000 (Version 1)
Quarter: 2014Q2

REPORT INFORMATION
  Report Type: Report from Study
  Country: BR (occurrence: BR)
  Receive Date: 20140420
  Receipt Date: 20140420
  Transmission Date: 20141212
  Serious: Yes (Other)
  Sender: FDA-Public Use
  Company Number: PHHY2014BR045929

PATIENT
  Sex: Male
  Weight: 70 kg

DRUGS (8)
  1. ASPIRIN PREVENT [Concomitant]
     Indication: THROMBOSIS PROPHYLAXIS
     Dosage: 1 DF (100 MG), DAILY
  2. PANTOPRAZOLE [Concomitant]
     Indication: GASTROINTESTINAL DISORDER
     Dosage: 1 DF (40 MG), DAILY
  3. COVERSYL PLUS [Concomitant]
     Dosage: 1 DF, DAILY
  4. LABIRIN [Concomitant]
     Indication: LABYRINTHITIS
     Dosage: 2 DF (24 MG), DAILY
  5. GALVUS MET [Suspect]
     Indication: DIABETES MELLITUS
     Dosage: 1 DF (1000 MG METF/ 50 MG VILD), DAILY
  6. FORASEQ [Suspect]
     Indication: LUNG DISORDER
     Dosage: 1 DF (12 UG FORM/ 400 UG BUDE), DAILY
  7. ANCORON [Suspect]
     Indication: ARRHYTHMIA
     Dosage: 1 DF (200 MG), DAILY
  8. AZUKON [Suspect]
     Indication: DIABETES MELLITUS
     Dosage: 1 DF (300 MG), DAILY

REACTIONS (1)
  - Cataract [Unknown]
